FAERS Safety Report 8718061 (Version 2)
Quarter: 2012Q4

REPORT INFORMATION
  Report Type: Report from Study
  Country: US (occurrence: US)
  Receive Date: 20120810
  Receipt Date: 20121005
  Transmission Date: 20130627
  Serious: Yes (Hospitalization)
  Sender: FDA-Public Use
  Company Number: US-UCBSA-063023

PATIENT
  Age: 50 Year
  Sex: Female
  Weight: 101.2 kg

DRUGS (30)
  1. CIMZIA [Suspect]
     Indication: CROHN^S DISEASE
     Route: 058
     Dates: start: 20091031, end: 20110615
  2. MESALAMINE [Concomitant]
     Indication: CROHN^S DISEASE
     Dates: start: 2001, end: 20030826
  3. MESALAMINE [Concomitant]
     Indication: CROHN^S DISEASE
     Dates: start: 20030826, end: 20050422
  4. MESALAMINE [Concomitant]
     Indication: CROHN^S DISEASE
     Dates: start: 20050504, end: 20090508
  5. MESALAMINE [Concomitant]
     Indication: CROHN^S DISEASE
     Dates: start: 20090508
  6. PREDNISONE [Concomitant]
     Indication: CROHN^S DISEASE
     Dates: start: 1987, end: 200502
  7. PREDNISONE [Concomitant]
     Indication: CROHN^S DISEASE
     Dates: start: 20060118, end: 20080401
  8. PREDNISONE [Concomitant]
     Indication: CROHN^S DISEASE
     Dates: start: 200907
  9. PREDNISONE [Concomitant]
     Indication: CROHN^S DISEASE
     Dates: start: 20110728
  10. PREDNISONE [Concomitant]
     Indication: CROHN^S DISEASE
     Dosage: 5 MG DAILY
     Route: 048
  11. METHOTREXATE [Concomitant]
     Indication: CROHN^S DISEASE
     Dates: start: 20030425, end: 2003
  12. METHOTREXATE [Concomitant]
     Indication: CROHN^S DISEASE
     Dates: start: 200603, end: 200608
  13. METHOTREXATE [Concomitant]
     Indication: CROHN^S DISEASE
     Dates: start: 200902
  14. COUMADIN [Concomitant]
     Indication: PROPHYLAXIS
     Route: 048
     Dates: start: 20101127
  15. COUMADIN [Concomitant]
     Indication: PROPHYLAXIS
     Dosage: DAILY DOSE 4 MG
     Route: 048
     Dates: start: 201208
  16. MIRTAZAPINE [Concomitant]
     Indication: DEPRESSION
     Route: 048
     Dates: start: 2010
  17. PROMETHAZINE [Concomitant]
     Indication: NAUSEA
     Route: 048
     Dates: start: 201011
  18. FOLIC ACID [Concomitant]
     Indication: FOLATE DEFICIENCY
     Route: 048
     Dates: start: 201103
  19. DEXILANT [Concomitant]
     Indication: GASTROOESOPHAGEAL REFLUX DISEASE
     Route: 048
     Dates: start: 201011
  20. CALCIUM CARBONATE [Concomitant]
     Indication: GASTROOESOPHAGEAL REFLUX DISEASE
     Dosage: 2 TABLETS
     Route: 048
     Dates: start: 2011
  21. BUPROPION [Concomitant]
     Indication: DEPRESSION
     Route: 048
     Dates: start: 2009
  22. DICYCLOMINE [Concomitant]
     Indication: ABDOMINAL TENDERNESS
     Route: 048
     Dates: start: 20111005
  23. METFORMIN [Concomitant]
     Indication: DIABETES MELLITUS
     Route: 048
     Dates: start: 20111115
  24. GLIMEPIRIDE [Concomitant]
     Indication: DIABETES MELLITUS
     Route: 048
     Dates: start: 20111115
  25. AZELASTINE [Concomitant]
     Indication: SEASONAL ALLERGY
     Dosage: 1 SPRAY
     Route: 045
     Dates: start: 20111115
  26. ZOLPIDEM [Concomitant]
     Indication: INSOMNIA
     Route: 048
     Dates: start: 20111115
  27. COLESTIDE [Concomitant]
     Indication: DIARRHOEA
     Dosage: 4 TABLETS
     Route: 048
     Dates: start: 20111219
  28. FUROSEMIDE [Concomitant]
     Indication: OEDEMA PERIPHERAL
     Route: 048
     Dates: start: 20120301
  29. POTASSIUM CHLORIDE [Concomitant]
     Indication: HYPOKALAEMIA
     Route: 048
     Dates: start: 20120301
  30. LOVENOX [Concomitant]

REACTIONS (1)
  - Sepsis [Recovering/Resolving]
